FAERS Safety Report 18397475 (Version 5)
Quarter: 2022Q2

REPORT INFORMATION
  Report Type: Spontaneous
  Country: US (occurrence: US)
  Receive Date: 20201019
  Receipt Date: 20220418
  Transmission Date: 20220721
  Serious: Yes (Other)
  Sender: FDA-Public Use
  Company Number: US-SA-2020SA287996

PATIENT
  Age: 12 Year
  Sex: Male

DRUGS (10)
  1. ELOCTATE [Suspect]
     Active Substance: (1-743)-(1638-2332)-BLOOD-COAGULATION FACTOR VIII (SYNTHETIC HUMAN) FUSION PROTEIN WITH IMMUNOGLOBUL
     Dosage: 2000 U
     Route: 041
  2. ELOCTATE [Suspect]
     Active Substance: (1-743)-(1638-2332)-BLOOD-COAGULATION FACTOR VIII (SYNTHETIC HUMAN) FUSION PROTEIN WITH IMMUNOGLOBUL
     Dosage: 2000 U
     Route: 041
  3. ELOCTATE [Suspect]
     Active Substance: (1-743)-(1638-2332)-BLOOD-COAGULATION FACTOR VIII (SYNTHETIC HUMAN) FUSION PROTEIN WITH IMMUNOGLOBUL
     Dosage: UNK, QD (FOR BLEED ON LEFT KNEE)
     Route: 041
     Dates: start: 202010
  4. ELOCTATE [Suspect]
     Active Substance: (1-743)-(1638-2332)-BLOOD-COAGULATION FACTOR VIII (SYNTHETIC HUMAN) FUSION PROTEIN WITH IMMUNOGLOBUL
     Dosage: UNK, QD (FOR BLEED ON LEFT KNEE)
     Route: 041
     Dates: start: 202010
  5. ELOCTATE [Suspect]
     Active Substance: (1-743)-(1638-2332)-BLOOD-COAGULATION FACTOR VIII (SYNTHETIC HUMAN) FUSION PROTEIN WITH IMMUNOGLOBUL
     Dosage: 3 DF
     Route: 042
     Dates: start: 20210314, end: 202103
  6. ELOCTATE [Suspect]
     Active Substance: (1-743)-(1638-2332)-BLOOD-COAGULATION FACTOR VIII (SYNTHETIC HUMAN) FUSION PROTEIN WITH IMMUNOGLOBUL
     Dosage: 3 DF
     Route: 042
     Dates: start: 20210314, end: 202103
  7. ELOCTATE [Suspect]
     Active Substance: (1-743)-(1638-2332)-BLOOD-COAGULATION FACTOR VIII (SYNTHETIC HUMAN) FUSION PROTEIN WITH IMMUNOGLOBUL
     Dosage: 2000 IU, QD
     Route: 042
     Dates: start: 20210923, end: 20210926
  8. ELOCTATE [Suspect]
     Active Substance: (1-743)-(1638-2332)-BLOOD-COAGULATION FACTOR VIII (SYNTHETIC HUMAN) FUSION PROTEIN WITH IMMUNOGLOBUL
     Dosage: 2000 IU, QD
     Route: 042
     Dates: start: 20210923, end: 20210926
  9. ELOCTATE [Suspect]
     Active Substance: (1-743)-(1638-2332)-BLOOD-COAGULATION FACTOR VIII (SYNTHETIC HUMAN) FUSION PROTEIN WITH IMMUNOGLOBUL
     Dosage: 2000 U (+/-10%)
  10. ELOCTATE [Suspect]
     Active Substance: (1-743)-(1638-2332)-BLOOD-COAGULATION FACTOR VIII (SYNTHETIC HUMAN) FUSION PROTEIN WITH IMMUNOGLOBUL
     Dosage: 2000 U (+/-10%)

REACTIONS (8)
  - Haemarthrosis [Recovered/Resolved]
  - Haemorrhage [Recovered/Resolved]
  - Haemorrhage [Unknown]
  - Haematoma [Recovered/Resolved]
  - COVID-19 [Unknown]
  - Contusion [Unknown]
  - Swelling [Unknown]
  - Pain in extremity [Unknown]

NARRATIVE: CASE EVENT DATE: 20201010
